FAERS Safety Report 10017092 (Version 1)
Quarter: 2014Q1

REPORT INFORMATION
  Report Type: Spontaneous
  Country: US (occurrence: US)
  Receive Date: 20140318
  Receipt Date: 20140318
  Transmission Date: 20141002
  Serious: No
  Sender: FDA-Public Use
  Company Number: US-009507513-1403USA007449

PATIENT
  Age: 23 Year
  Sex: Female
  Weight: 58.96 kg

DRUGS (1)
  1. NUVARING [Suspect]
     Indication: CONTRACEPTION
     Dosage: UNK, CONTINUALLY
     Route: 067
     Dates: start: 201401, end: 201403

REACTIONS (3)
  - Depression [Unknown]
  - Dyspareunia [Unknown]
  - Headache [Unknown]
